FAERS Safety Report 7646035-7 (Version None)
Quarter: 2011Q3

REPORT INFORMATION
  Report Type: 
  Country: None (occurrence: None)
  Receive Date: 20110801
  Receipt Date: 20110720
  Transmission Date: 20111222
  Serious: Yes (Hospitalization)
  Sender: FDA-Public Use
  Company Number: FR-BRISTOL-MYERS SQUIBB COMPANY-15918089

PATIENT
  Age: 70 Year
  Sex: Male

DRUGS (8)
  1. METFORMIN HCL [Suspect]
     Route: 048
     Dates: start: 20100501, end: 20110601
  2. LANTUS [Suspect]
     Route: 058
     Dates: end: 20110601
  3. BISOPROLOL FUMARATE [Suspect]
     Route: 048
     Dates: start: 20100201
  4. ASPIRIN [Suspect]
     Dosage: ALSO 160MG/D
     Route: 048
  5. LASIX [Suspect]
     Dosage: FEB10-AUG10 NOV10-14JUN11
     Route: 048
     Dates: start: 20100201, end: 20110614
  6. IRBESARTAN AND HYDROCHLOROTHIAZIDE [Suspect]
     Route: 048
     Dates: start: 20100801, end: 20110601
  7. REPAGLINIDE [Suspect]
     Route: 048
     Dates: start: 20100201, end: 20110601
  8. LERCANIDIPINE [Suspect]
     Route: 048
     Dates: start: 20100501, end: 20110601

REACTIONS (5)
  - ACUTE CORONARY SYNDROME [None]
  - RENAL FAILURE ACUTE [None]
  - EOSINOPHILIA [None]
  - IRON DEFICIENCY ANAEMIA [None]
  - CONDITION AGGRAVATED [None]
